FAERS Safety Report 6206305-6 (Version None)
Quarter: 2009Q2

REPORT INFORMATION
  Report Type: 
  Country: None (occurrence: None)
  Receive Date: 20090528
  Receipt Date: 20090518
  Transmission Date: 20091009
  Serious: Yes (Other)
  Sender: FDA-Public Use
  Company Number: JP-BAYER-200911587BYL

PATIENT
  Age: 42 Year
  Sex: Male
  Weight: 63 kg

DRUGS (13)
  1. FLUDARA [Suspect]
     Indication: MULTIPLE MYELOMA
     Dosage: AS USED: 25 MG/M2  UNIT DOSE: 50 MG
     Route: 042
     Dates: start: 20081206, end: 20081210
  2. ALKERAN [Concomitant]
     Indication: MULTIPLE MYELOMA
     Dosage: AS USED: 40 MG/M2
     Route: 042
     Dates: start: 20081208, end: 20081208
  3. ALKERAN [Concomitant]
     Dosage: AS USED: 40 MG/M2
     Route: 042
     Dates: start: 20081210, end: 20081210
  4. METHOTREXATE [Concomitant]
     Dosage: AS USED: 17 MG
     Route: 041
     Dates: start: 20081213, end: 20081213
  5. METHOTREXATE [Concomitant]
     Dosage: AS USED: 12 MG
     Route: 041
     Dates: start: 20081218, end: 20081218
  6. METHOTREXATE [Concomitant]
     Dosage: AS USED: 12 MG
     Route: 041
     Dates: start: 20081223, end: 20081223
  7. METHOTREXATE [Concomitant]
     Dosage: AS USED: 12 MG
     Route: 041
     Dates: start: 20081215, end: 20081215
  8. PROGRAF [Concomitant]
     Route: 041
     Dates: start: 20081212, end: 20090122
  9. PROGRAF [Concomitant]
     Dosage: TOTAL DAILY DOSE: 2 MG  UNIT DOSE: 0.2 MG
     Route: 048
     Dates: start: 20090130, end: 20090204
  10. PROGRAF [Concomitant]
     Dosage: TOTAL DAILY DOSE: 4 MG  UNIT DOSE: 0.2 MG
     Route: 048
     Dates: start: 20090205, end: 20090205
  11. PROGRAF [Concomitant]
     Dosage: TOTAL DAILY DOSE: 2 MG  UNIT DOSE: 0.2 MG
     Route: 048
     Dates: start: 20090206, end: 20090306
  12. CONCENTRATED RED CELLS [Concomitant]
     Indication: PACKED RED BLOOD CELL TRANSFUSION
     Route: 042
     Dates: start: 20081224, end: 20090104
  13. PLATELETS [Concomitant]
     Indication: PLATELET TRANSFUSION
     Route: 042
     Dates: start: 20081217, end: 20090105

REACTIONS (2)
  - ACUTE GRAFT VERSUS HOST DISEASE IN INTESTINE [None]
  - ACUTE GRAFT VERSUS HOST DISEASE IN SKIN [None]
